FAERS Safety Report 7325550-X (Version None)
Quarter: 2011Q1

REPORT INFORMATION
  Report Type: 
  Country: None (occurrence: None)
  Receive Date: 20110302
  Receipt Date: 20110224
  Transmission Date: 20110831
  Serious: Yes (Other)
  Sender: FDA-Public Use
  Company Number: US-NOVOPROD-318250

PATIENT
  Sex: Male
  Weight: 60 kg

DRUGS (1)
  1. NORDITROPIN NORDIFLEX [Suspect]
     Indication: GROWTH HORMONE DEFICIENCY
     Dosage: 4.5 MG, 6 TIMES/WEEK
     Route: 058
     Dates: start: 20061228

REACTIONS (1)
  - HAND FRACTURE [None]
